FAERS Safety Report 16817623 (Version 1)
Quarter: 2019Q3

REPORT INFORMATION
  Report Type: Spontaneous
  Country: US (occurrence: US)
  Receive Date: 20190917
  Receipt Date: 20190917
  Transmission Date: 20191005
  Serious: No
  Sender: FDA-Public Use
  Company Number: US-BAYER-2019-169684

PATIENT
  Age: 27 Year
  Sex: Female

DRUGS (2)
  1. CLARITIN [Suspect]
     Active Substance: LORATADINE
     Indication: HISTAMINE ABNORMAL
     Dosage: 0.25 DF, QD
     Route: 048
     Dates: start: 201908
  2. CLARITIN [Suspect]
     Active Substance: LORATADINE
     Indication: HISTAMINE ABNORMAL
     Dosage: 0.5 DF, QD
     Route: 048
     Dates: start: 201908

REACTIONS (4)
  - Off label use [Recovered/Resolved]
  - Psychomotor hyperactivity [Recovered/Resolved]
  - Feeling abnormal [Recovered/Resolved]
  - Product use in unapproved indication [Recovered/Resolved]

NARRATIVE: CASE EVENT DATE: 201908
